FAERS Safety Report 26026174 (Version 4)
Quarter: 2025Q4

REPORT INFORMATION
  Report Type: Spontaneous
  Country: JP (occurrence: JP)
  Receive Date: 20251111
  Receipt Date: 20251211
  Transmission Date: 20260118
  Serious: Yes (Death)
  Sender: ELI LILLY AND COMPANY
  Company Number: JP-ELI_LILLY_AND_COMPANY-JP202511011177

PATIENT
  Age: 55 Year
  Sex: Male

DRUGS (15)
  1. MOUNJARO [Suspect]
     Active Substance: TIRZEPATIDE
     Indication: Type 2 diabetes mellitus
     Dosage: 2.5 MG, WEEKLY (1/W)
     Route: 058
     Dates: start: 20251107, end: 20251107
  2. MOUNJARO [Suspect]
     Active Substance: TIRZEPATIDE
     Indication: Type 2 diabetes mellitus
     Dosage: 2.5 MG, WEEKLY (1/W)
     Route: 058
     Dates: start: 20251107, end: 20251107
  3. MOUNJARO [Suspect]
     Active Substance: TIRZEPATIDE
     Indication: Type 2 diabetes mellitus
     Dosage: 2.5 MG, WEEKLY (1/W)
     Route: 058
     Dates: start: 20251107, end: 20251107
  4. MOUNJARO [Suspect]
     Active Substance: TIRZEPATIDE
     Indication: Type 2 diabetes mellitus
     Dosage: 2.5 MG, WEEKLY (1/W)
     Route: 058
     Dates: start: 20251107, end: 20251107
  5. FUROSEMIDE [Suspect]
     Active Substance: FUROSEMIDE
     Indication: Hypertension
     Dosage: 160 MG
     Route: 048
  6. EVOCALCET [Suspect]
     Active Substance: EVOCALCET
     Indication: Hypercalcaemia
     Dosage: 2 MG
     Route: 065
  7. VONOPRAZAN FUMARATE [Suspect]
     Active Substance: VONOPRAZAN FUMARATE
     Indication: Gastric ulcer
     Dosage: 20 MG
     Route: 048
  8. LINAGLIPTIN [Suspect]
     Active Substance: LINAGLIPTIN
     Indication: Type 2 diabetes mellitus
     Dosage: 5 MG
     Route: 048
  9. DAPRODUSTAT [Suspect]
     Active Substance: DAPRODUSTAT
     Indication: Nephrogenic anaemia
     Dosage: 8 MG
     Route: 048
  10. EPERISONE HYDROCHLORIDE [Suspect]
     Active Substance: EPERISONE HYDROCHLORIDE
     Indication: Product used for unknown indication
     Dosage: 150 MG
     Route: 048
  11. FERRIC CITRATE ANHYDROUS [Suspect]
     Active Substance: FERRIC CITRATE ANHYDROUS
     Indication: Chronic kidney disease
     Dosage: 2250 MG
     Route: 048
  12. AMLODIPINE [Suspect]
     Active Substance: AMLODIPINE BESYLATE
     Indication: Hypertension
     Dosage: 5 MG
     Route: 048
  13. BETAMETHASONE DIPROPIONATE [Suspect]
     Active Substance: BETAMETHASONE DIPROPIONATE
     Indication: Dermatitis
     Route: 065
  14. REGUNEAL LCA [Suspect]
     Active Substance: CALCIUM CHLORIDE\DEXTROSE MONOHYDRATE\HYDROCHLORIC ACID\MAGNESIUM CHLORIDE\SODIUM BICARBONATE\SODIUM
     Indication: Peritoneal dialysis
     Route: 065
  15. EXTRANEAL [Suspect]
     Active Substance: CALCIUM CHLORIDE\ICODEXTRIN\MAGNESIUM CHLORIDE\SODIUM CHLORIDE\SODIUM LACTATE
     Indication: Peritoneal dialysis
     Route: 065

REACTIONS (1)
  - Brain stem haemorrhage [Fatal]

NARRATIVE: CASE EVENT DATE: 20251107
